APPROVED DRUG PRODUCT: COGNEX
Active Ingredient: TACRINE HYDROCHLORIDE
Strength: EQ 20MG BASE
Dosage Form/Route: CAPSULE;ORAL
Application: N020070 | Product #002
Applicant: SHIONOGI INC
Approved: Sep 9, 1993 | RLD: No | RS: No | Type: DISCN